FAERS Safety Report 14605272 (Version 2)
Quarter: 2018Q2

REPORT INFORMATION
  Report Type: Spontaneous
  Country: US (occurrence: US)
  Receive Date: 20180306
  Receipt Date: 20180504
  Transmission Date: 20180711
  Serious: Yes (Death)
  Sender: FDA-Public Use
  Company Number: US-PFIZER INC-2018089035

PATIENT
  Age: 79 Year
  Sex: Male

DRUGS (4)
  1. ALLOPURINOL. [Concomitant]
     Active Substance: ALLOPURINOL
     Dosage: 300 MG, UNK
     Dates: start: 201611, end: 20180225
  2. VFEND [Suspect]
     Active Substance: VORICONAZOLE
     Indication: ACUTE MYELOID LEUKAEMIA
     Dosage: 200 MG, 2X/DAY
     Route: 048
  3. LEVOFLOXACIN. [Concomitant]
     Active Substance: LEVOFLOXACIN
     Dosage: 500 MG, UNK
     Dates: start: 201611, end: 20180225
  4. VALACYCLOVIR [Concomitant]
     Active Substance: VALACYCLOVIR HYDROCHLORIDE
     Dosage: 500 MG, UNK
     Dates: start: 201611, end: 20180225

REACTIONS (2)
  - Product use in unapproved indication [Unknown]
  - Death [Fatal]

NARRATIVE: CASE EVENT DATE: 20180225
